FAERS Safety Report 5246848-5 (Version None)
Quarter: 2007Q1

REPORT INFORMATION
  Report Type: 
  Country: None (occurrence: None)
  Receive Date: 20070226
  Receipt Date: 20070214
  Transmission Date: 20070707
  Serious: Yes (Hospitalization, Other)
  Sender: FDA-Public Use
  Company Number: US-ELI_LILLY_AND_COMPANY-US200702002843

PATIENT
  Age: 46 Year
  Sex: Female

DRUGS (6)
  1. CYMBALTA [Suspect]
     Indication: BACK PAIN
     Dosage: 30 MG, UNKNOWN
     Route: 048
     Dates: start: 20060501, end: 20070207
  2. PRILOSEC [Concomitant]
     Indication: OESOPHAGEAL ULCER
  3. XANAX [Concomitant]
  4. SEROQUEL [Concomitant]
     Dosage: 50 MG, UNK
  5. VISTARIL [Concomitant]
  6. ANALGESICS [Concomitant]
     Indication: BACK PAIN

REACTIONS (1)
  - CEREBROVASCULAR ACCIDENT [None]
